FAERS Safety Report 15121398 (Version 4)
Quarter: 2018Q3

REPORT INFORMATION
  Report Type: Spontaneous
  Country: US (occurrence: US)
  Receive Date: 20180709
  Receipt Date: 20180921
  Transmission Date: 20181010
  Serious: Yes (Other)
  Sender: FDA-Public Use
  Company Number: US-PFIZER INC-2018274057

PATIENT
  Age: 50 Year
  Sex: Female
  Weight: 68.27 kg

DRUGS (3)
  1. LYRICA [Suspect]
     Active Substance: PREGABALIN
     Indication: HEMIPARESIS
  2. LYRICA [Suspect]
     Active Substance: PREGABALIN
     Indication: DISCOMFORT
     Dosage: 300 MG A DAY (4 CAPSULES)
     Route: 048
     Dates: start: 2007, end: 201807
  3. LYRICA [Suspect]
     Active Substance: PREGABALIN
     Indication: PERONEAL NERVE PALSY

REACTIONS (11)
  - Confusional state [Unknown]
  - Asthenia [Unknown]
  - Pain [Unknown]
  - Malaise [Unknown]
  - Panic attack [Unknown]
  - Fall [Unknown]
  - Cerebrovascular accident [Unknown]
  - Balance disorder [Unknown]
  - Product use in unapproved indication [Unknown]
  - Anxiety [Unknown]
  - Fear of death [Unknown]

NARRATIVE: CASE EVENT DATE: 2007
